FAERS Safety Report 8054993-4 (Version None)
Quarter: 2012Q1

REPORT INFORMATION
  Report Type: 
  Country: None (occurrence: None)
  Receive Date: 20120119
  Receipt Date: 20120112
  Transmission Date: 20120608
  Serious: Yes (Other)
  Sender: FDA-Public Use
  Company Number: BR-PFIZER INC-2012010508

PATIENT
  Age: 50 Year
  Sex: Male

DRUGS (3)
  1. EFFEXOR XR [Suspect]
     Indication: ANXIETY DISORDER
     Dosage: 150 MG, 1X/DAY (1 CAPSULE, DAILY)
     Route: 048
     Dates: start: 20070112, end: 20090112
  2. ARADOIS H [Concomitant]
     Indication: HYPERTENSION
     Dosage: 50 MG, 2X/DAY (1 TABLET, TWICE A DAY)
  3. DONAREN [Concomitant]
     Indication: SLEEP DISORDER
     Dosage: UNK

REACTIONS (3)
  - ANXIETY [None]
  - PERSECUTORY DELUSION [None]
  - FEAR [None]
